FAERS Safety Report 8424361-1 (Version None)
Quarter: 2012Q2

REPORT INFORMATION
  Report Type: 
  Country: None (occurrence: None)
  Receive Date: 20120608
  Receipt Date: 20110620
  Transmission Date: 20120825
  Serious: No
  Sender: FDA-Public Use
  Company Number: US-ASTRAZENECA-2011SE37485

PATIENT
  Age: 64 Year
  Sex: Female

DRUGS (4)
  1. ALBUTEROL SULFATE [Concomitant]
     Route: 065
  2. IPATROPIUM BROMIDE [Concomitant]
     Route: 065
  3. HUMALOG [Concomitant]
     Route: 065
  4. PULMICORT [Suspect]
     Indication: CHRONIC OBSTRUCTIVE PULMONARY DISEASE
     Route: 055

REACTIONS (1)
  - HYPERGLYCAEMIA [None]
